FAERS Safety Report 12003379 (Version 1)
Quarter: 2016Q1

REPORT INFORMATION
  Report Type: Report from Study
  Country: US (occurrence: US)
  Receive Date: 20160204
  Receipt Date: 20160204
  Transmission Date: 20160526
  Serious: No
  Sender: FDA-Public Use
  Company Number: US-ABBVIE-15K-163-1423384-00

PATIENT
  Sex: Female
  Weight: 65.8 kg

DRUGS (4)
  1. METHOTREXATE [Concomitant]
     Active Substance: METHOTREXATE
     Indication: CROHN^S DISEASE
  2. FOLIC ACID. [Concomitant]
     Active Substance: FOLIC ACID
     Indication: PRODUCT USED FOR UNKNOWN INDICATION
  3. AMITRIPTYLIN [Concomitant]
     Active Substance: AMITRIPTYLINE
     Indication: IRRITABLE BOWEL SYNDROME
  4. HUMIRA [Suspect]
     Active Substance: ADALIMUMAB
     Indication: CROHN^S DISEASE
     Route: 058
     Dates: start: 20150417, end: 20150612

REACTIONS (12)
  - Swelling face [Unknown]
  - Pruritus [Unknown]
  - Social avoidant behaviour [Unknown]
  - Photosensitivity reaction [Unknown]
  - Fatigue [Unknown]
  - Anxiety [Unknown]
  - Abdominal pain [Unknown]
  - Dizziness [Unknown]
  - Eye pain [Unknown]
  - Psychosomatic disease [Unknown]
  - Asthenia [Unknown]
  - Food allergy [Unknown]
